FAERS Safety Report 5592181-1 (Version None)
Quarter: 2008Q1

REPORT INFORMATION
  Report Type: 
  Country: None (occurrence: None)
  Receive Date: 20080115
  Receipt Date: 20070829
  Transmission Date: 20080703
  Serious: No
  Sender: FDA-Public Use
  Company Number: US-ABBOTT-07P-163-0415487-00

PATIENT
  Sex: Female

DRUGS (6)
  1. ADVICOR [Suspect]
     Indication: BLOOD CHOLESTEROL
     Dosage: 500MG/20MG
     Route: 048
     Dates: start: 20061201
  2. ADVICOR [Suspect]
     Dosage: 500MG/20MG
     Route: 048
     Dates: start: 20040101, end: 20061201
  3. METOPROLOL SUCCINATE [Concomitant]
     Indication: HYPERTENSION
  4. ESTROGENS CONJUGATED [Concomitant]
     Indication: DRUG USE FOR UNKNOWN INDICATION
     Dosage: LOW DOSE
  5. M.V.I. [Concomitant]
     Indication: DRUG USE FOR UNKNOWN INDICATION
  6. ASPIRIN [Concomitant]
     Indication: DRUG USE FOR UNKNOWN INDICATION

REACTIONS (1)
  - FLUSHING [None]
